FAERS Safety Report 22348255 (Version 1)
Quarter: 2023Q2

REPORT INFORMATION
  Report Type: Spontaneous
  Country: FR (occurrence: FR)
  Receive Date: 20230522
  Receipt Date: 20230522
  Transmission Date: 20230722
  Serious: Yes (Hospitalization, Other)
  Sender: FDA-Public Use
  Company Number: FR-SA-2016SA033212

PATIENT
  Age: 27 Year
  Sex: Female
  Weight: 43 kg

DRUGS (46)
  1. PREDNISONE [Suspect]
     Active Substance: PREDNISONE
     Indication: Prophylaxis against transplant rejection
     Dosage: 20 MG
     Route: 048
     Dates: start: 20111204
  2. PREDNISONE [Suspect]
     Active Substance: PREDNISONE
     Dosage: 2 MG
     Route: 048
     Dates: start: 202005, end: 2023
  3. GLIMEPIRIDE [Suspect]
     Active Substance: GLIMEPIRIDE
     Indication: Prophylaxis against transplant rejection
     Dosage: UNK
     Route: 048
     Dates: start: 201508, end: 201509
  4. GLIMEPIRIDE [Suspect]
     Active Substance: GLIMEPIRIDE
     Dosage: 100 MG
     Route: 048
     Dates: start: 2015, end: 20161222
  5. EVEROLIMUS [Suspect]
     Active Substance: EVEROLIMUS
     Indication: Heart and lung transplant
     Dosage: 1 MG
     Route: 048
     Dates: start: 20150506, end: 201508
  6. EVEROLIMUS [Suspect]
     Active Substance: EVEROLIMUS
     Dosage: UNK
     Route: 048
     Dates: start: 201509
  7. TACROLIMUS [Suspect]
     Active Substance: TACROLIMUS
     Indication: Prophylaxis against transplant rejection
     Dosage: 1 MG
     Route: 048
     Dates: start: 20111204
  8. TACROLIMUS [Suspect]
     Active Substance: TACROLIMUS
     Dosage: 4.5 MG
     Route: 048
     Dates: start: 202005, end: 2023
  9. CELLCEPT [Suspect]
     Active Substance: MYCOPHENOLATE MOFETIL
     Indication: Prophylaxis against transplant rejection
     Dosage: UNK
     Route: 048
     Dates: start: 20111204, end: 20130221
  10. CELLCEPT [Suspect]
     Active Substance: MYCOPHENOLATE MOFETIL
     Dosage: 1.5 G, BID
     Route: 048
     Dates: start: 20161222, end: 202005
  11. AZATHIOPRINE [Suspect]
     Active Substance: AZATHIOPRINE
     Indication: Heart and lung transplant
     Dosage: UNK UNK,UNK
     Route: 048
     Dates: start: 201508, end: 201509
  12. AZATHIOPRINE [Suspect]
     Active Substance: AZATHIOPRINE
     Indication: Product used for unknown indication
  13. AZITHROMYCIN [Concomitant]
     Active Substance: AZITHROMYCIN
     Indication: Product used for unknown indication
     Dosage: UNK
  14. AZITHROMYCIN [Concomitant]
     Active Substance: AZITHROMYCIN
     Dosage: UNK (CHOLURSO? 500 MG IN THE MORNING)
  15. LERCANIDIPINE [Concomitant]
     Active Substance: LERCANIDIPINE
     Indication: Product used for unknown indication
     Dosage: UNK
  16. BISOPROLOL [Concomitant]
     Active Substance: BISOPROLOL
     Indication: Product used for unknown indication
     Dosage: UNK
  17. PRAVASTATIN SODIUM [Concomitant]
     Active Substance: PRAVASTATIN SODIUM
     Indication: Product used for unknown indication
     Dosage: UNK
  18. CHOLECALCIFEROL [Concomitant]
     Active Substance: CHOLECALCIFEROL
     Indication: Product used for unknown indication
     Dosage: UNK
  19. CREON [Concomitant]
     Active Substance: PANCRELIPASE AMYLASE\PANCRELIPASE LIPASE\PANCRELIPASE PROTEASE
     Indication: Product used for unknown indication
     Dosage: UNK (PANCREATIN 300 MG 4 GELS MORNING NOON EVENING)
  20. .ALPHA.-TOCOPHEROL ACETATE, D- [Concomitant]
     Active Substance: .ALPHA.-TOCOPHEROL ACETATE, D-
     Dosage: UNK
  21. URSODIOL [Concomitant]
     Active Substance: URSODIOL
     Indication: Product used for unknown indication
     Dosage: UNK (CHOLURSO? 500 MG IN THE MORNING)
  22. FERROUS SULFATE [Concomitant]
     Active Substance: FERROUS SULFATE
     Indication: Product used for unknown indication
     Dosage: UNK
  23. ALFACALCIDOL [Concomitant]
     Active Substance: ALFACALCIDOL
     Dosage: UNK
  24. RETINOL [Concomitant]
     Active Substance: RETINOL
     Indication: Product used for unknown indication
     Dosage: UNK
  25. SEVELAMER [Concomitant]
     Active Substance: SEVELAMER
     Dosage: UNK
  26. ESOMEPRAZOLE MAGNESIUM [Concomitant]
     Active Substance: ESOMEPRAZOLE MAGNESIUM
     Dosage: UNK
  27. LEUCOVORIN CALCIUM [Concomitant]
     Active Substance: LEUCOVORIN CALCIUM
     Indication: Product used for unknown indication
     Dosage: UNK
  28. APIDRA [Concomitant]
     Active Substance: INSULIN GLULISINE
     Indication: Product used for unknown indication
     Dosage: UNK
  29. APIDRA [Concomitant]
     Active Substance: INSULIN GLULISINE
  30. APIDRA [Concomitant]
     Active Substance: INSULIN GLULISINE
  31. POTASSIUM CHLORIDE [Concomitant]
     Active Substance: POTASSIUM CHLORIDE
     Indication: Product used for unknown indication
     Dosage: UNK
  32. POTASSIUM CHLORIDE [Concomitant]
     Active Substance: POTASSIUM CHLORIDE
  33. ALVERINE CITRATE;DL-METHIONINE [Concomitant]
     Dosage: UNK
  34. CALTRATE [Concomitant]
     Active Substance: CALCIUM CARBONATE
     Indication: Product used for unknown indication
     Dosage: UNK
  35. VITAMIN E [Concomitant]
     Active Substance: .ALPHA.-TOCOPHEROL
     Indication: Product used for unknown indication
  36. RENAGEL [Concomitant]
     Active Substance: SEVELAMER HYDROCHLORIDE
     Indication: Product used for unknown indication
     Dosage: UNK
  37. VENTOLINE ROTACAPS [Concomitant]
     Indication: Product used for unknown indication
  38. METEOSPASMIL [Concomitant]
     Indication: Product used for unknown indication
     Dosage: UNK
  39. GENAGEL [Concomitant]
     Indication: Product used for unknown indication
     Dosage: UNK
  40. VITAMINS D3 [Concomitant]
     Indication: Product used for unknown indication
     Dosage: UNK
  41. VITAMINS D3 [Concomitant]
     Dosage: UNK (TOCOPHEROL 500MG, VO MORNING EVERY 2ND DAY)
  42. FOLIC ACID [Concomitant]
     Active Substance: FOLIC ACID
     Dosage: 5 MG, QD (5 MG 1 TABLET IN THE MORNING)
  43. PANTOPRAZOLE [Concomitant]
     Active Substance: PANTOPRAZOLE
     Dosage: 20 MG (20 MG IN THE EVENING)
  44. LETERMOVIR [Concomitant]
     Active Substance: LETERMOVIR
     Dosage: 480 MG, QD
  45. CALTRATE JR [Concomitant]
     Indication: Product used for unknown indication
     Dosage: UNK
  46. ENEXIUM [Concomitant]
     Indication: Product used for unknown indication
     Dosage: UNK

REACTIONS (7)
  - Bowen^s disease [Not Recovered/Not Resolved]
  - Actinic keratosis [Recovered/Resolved]
  - Actinic keratosis [Recovered/Resolved]
  - Squamous cell carcinoma of skin [Not Recovered/Not Resolved]
  - Hyperkeratosis [Unknown]
  - Skin papilloma [Recovering/Resolving]
  - Actinic keratosis [Recovering/Resolving]

NARRATIVE: CASE EVENT DATE: 20150403
